FAERS Safety Report 5317756-6 (Version None)
Quarter: 2007Q2

REPORT INFORMATION
  Report Type: 
  Country: None (occurrence: None)
  Receive Date: 20070502
  Receipt Date: 20070502
  Transmission Date: 20071010
  Serious: Yes (Hospitalization)
  Sender: FDA-Public Use
  Company Number: None

PATIENT
  Age: 48 Year
  Sex: Male

DRUGS (1)
  1. SULFAMETHOXAZOLE AND TRIMETHOPRIM [Suspect]
     Indication: ABSCESS
     Dosage: 800/160MG   BID  PO
     Route: 048
     Dates: start: 20070123, end: 20070130

REACTIONS (1)
  - NEPHRITIS INTERSTITIAL [None]
